FAERS Safety Report 13354516 (Version 4)
Quarter: 2017Q2

REPORT INFORMATION
  Report Type: Spontaneous
  Country: JP (occurrence: JP)
  Receive Date: 20170321
  Receipt Date: 20170428
  Transmission Date: 20170830
  Serious: Yes (Other)
  Sender: FDA-Public Use
  Company Number: JP-ASTELLAS-2017JP004577AA

PATIENT
  Age: 83 Year
  Sex: Female
  Weight: 43 kg

DRUGS (7)
  1. CANDESARTAN                        /01349502/ [Suspect]
     Active Substance: CANDESARTAN
     Indication: HYPERTENSION
     Route: 048
     Dates: start: 20170225, end: 20170309
  2. RANITIDINE. [Concomitant]
     Active Substance: RANITIDINE
     Indication: CHRONIC GASTRITIS
     Route: 048
  3. SOFALCONE [Concomitant]
     Active Substance: SOFALCONE
     Indication: CHRONIC GASTRITIS
     Dosage: 0.5 G, THRICE DAILY
     Route: 048
  4. BETANIS [Suspect]
     Active Substance: MIRABEGRON
     Indication: HYPERTONIC BLADDER
     Route: 048
     Dates: start: 20170225, end: 20170309
  5. ETIZOLAM [Concomitant]
     Active Substance: ETIZOLAM
     Indication: ANXIETY DISORDER
     Dosage: 0.5 MG, TWICE DAILY
     Route: 048
  6. NEUROVITAN                         /00176001/ [Concomitant]
     Indication: NEURALGIA
     Route: 048
  7. CEREKINON [Concomitant]
     Active Substance: TRIMEBUTINE
     Indication: CHRONIC GASTRITIS
     Route: 048

REACTIONS (5)
  - Rash generalised [Recovering/Resolving]
  - Renal disorder [Recovered/Resolved]
  - Pancytopenia [Recovered/Resolved]
  - Pyrexia [Recovered/Resolved]
  - Liver disorder [Recovered/Resolved]

NARRATIVE: CASE EVENT DATE: 20170309
